FAERS Safety Report 8916755 (Version 5)
Quarter: 2013Q2

REPORT INFORMATION
  Report Type: Spontaneous
  Country: US (occurrence: US)
  Receive Date: 20121120
  Receipt Date: 20130513
  Transmission Date: 20140414
  Serious: Yes (Hospitalization)
  Sender: FDA-Public Use
  Company Number: US-B.I. PHARMACEUTICALS,INC./RIDGEFIELD-2012-BI-00106BP

PATIENT
  Age: 77 Year
  Sex: Female
  Weight: 74.84 kg

DRUGS (10)
  1. PRADAXA [Suspect]
     Indication: ATRIAL FIBRILLATION
     Dosage: 300 MG
     Route: 048
     Dates: start: 20111229, end: 20120101
  2. PRAVASTATIN [Concomitant]
     Dates: start: 2004, end: 2012
  3. VALSARTAN [Concomitant]
     Dates: start: 2010, end: 2012
  4. CARVEDILOL [Concomitant]
     Dates: start: 2010, end: 2012
  5. OMEPRAZOLE [Concomitant]
     Dates: start: 2011, end: 2012
  6. CARBAMAZEPINE [Concomitant]
  7. COMBIVENT [Concomitant]
  8. PRO AIR HFA [Concomitant]
  9. VOLTAREN GEL [Concomitant]
  10. ASPIRIN [Concomitant]
     Dates: start: 2004, end: 201112

REACTIONS (3)
  - Ulcer haemorrhage [Unknown]
  - Gastrointestinal haemorrhage [Unknown]
  - Haematochezia [Unknown]
